FAERS Safety Report 8036552-2 (Version None)
Quarter: 2012Q1

REPORT INFORMATION
  Report Type: 
  Country: None (occurrence: None)
  Receive Date: 20120111
  Receipt Date: 20120105
  Transmission Date: 20120608
  Serious: Yes (Hospitalization, Other)
  Sender: FDA-Public Use
  Company Number: CA-GILEAD-2011-0045381

PATIENT
  Sex: Male

DRUGS (9)
  1. NORVIR [Concomitant]
     Dosage: 100 MG, QD
     Route: 048
     Dates: end: 20110926
  2. VIREAD [Suspect]
     Indication: HIV INFECTION
     Dosage: 300 MG, QD
     Route: 048
     Dates: start: 20070111, end: 20110926
  3. NORVIR [Concomitant]
     Indication: HIV INFECTION
     Dosage: 100 MG, BID
     Route: 048
     Dates: start: 20070111
  4. CALCIUM ACETATE [Concomitant]
     Indication: PRODUCT USED FOR UNKNOWN INDICATION
     Dosage: UNK
     Route: 065
  5. ADVIL LIQUI-GELS [Suspect]
     Indication: PAIN
     Dosage: 200 UNKNOWN, PRN
     Route: 065
  6. PREZISTA [Concomitant]
     Dosage: 800 MG, QD
     Route: 048
     Dates: end: 20110926
  7. VITAMIN D [Concomitant]
     Indication: PRODUCT USED FOR UNKNOWN INDICATION
     Dosage: UNK
     Route: 065
  8. PREZISTA [Concomitant]
     Indication: HIV INFECTION
     Dosage: 600 MG, BID
     Route: 048
     Dates: start: 20070111
  9. INTELENCE [Concomitant]
     Indication: HIV INFECTION
     Dosage: 200 MG, BID
     Route: 048
     Dates: start: 20070111

REACTIONS (2)
  - ANGINA PECTORIS [None]
  - FANCONI SYNDROME ACQUIRED [None]
